FAERS Safety Report 25805680 (Version 1)
Quarter: 2025Q3

REPORT INFORMATION
  Report Type: Spontaneous
  Country: US (occurrence: US)
  Receive Date: 20250916
  Receipt Date: 20250916
  Transmission Date: 20251021
  Serious: Yes (Other)
  Sender: COOPERSURGICAL
  Company Number: US-COOPERSURGICAL, INC.-2025CPS006604

PATIENT
  Age: 24 Year
  Sex: Female
  Weight: 122 kg

DRUGS (2)
  1. PARAGARD T 380A [Suspect]
     Active Substance: COPPER
     Indication: Contraception
     Route: 015
     Dates: start: 20061101
  2. ALBUTEROL [Concomitant]
     Active Substance: ALBUTEROL

REACTIONS (23)
  - Hysterectomy [Recovered/Resolved]
  - Salpingectomy [Recovered/Resolved]
  - Reproductive complication associated with device [Unknown]
  - Surgery [Recovered/Resolved]
  - Device breakage [Recovered/Resolved]
  - Foreign body in reproductive tract [Recovered/Resolved]
  - Complication of device removal [Recovered/Resolved]
  - Embedded device [Recovered/Resolved]
  - Uterine perforation [Recovered/Resolved]
  - Uterine cervix stenosis [Recovered/Resolved]
  - Device issue [Recovered/Resolved]
  - Anxiety [Recovered/Resolved]
  - Abdominal distension [Recovered/Resolved]
  - Procedural pain [Recovered/Resolved]
  - Abnormal uterine bleeding [Recovered/Resolved]
  - Dyspareunia [Recovered/Resolved]
  - Muscle spasms [Unknown]
  - Heavy menstrual bleeding [Recovered/Resolved]
  - Intentional device use issue [Recovered/Resolved]
  - Off label use [Unknown]
  - Dysmenorrhoea [Recovered/Resolved]
  - Pain [Recovered/Resolved]
  - Pelvic pain [Recovered/Resolved]

NARRATIVE: CASE EVENT DATE: 20061101
